FAERS Safety Report 5945589-6 (Version None)
Quarter: 2008Q4

REPORT INFORMATION
  Report Type: 
  Country: None (occurrence: None)
  Receive Date: 20081105
  Receipt Date: 20081023
  Transmission Date: 20090506
  Serious: Yes (Hospitalization)
  Sender: FDA-Public Use
  Company Number: PAR_02393_2008

PATIENT
  Age: 76 Year
  Sex: Male

DRUGS (5)
  1. ALLOPURINOL [Suspect]
     Indication: DRUG USE FOR UNKNOWN INDICATION
     Dosage: (DF)
     Dates: end: 20051201
  2. ALLOPURINOL [Suspect]
     Indication: HYPERURICAEMIA
     Dosage: (100 MG)
     Dates: start: 20070301
  3. CLOPIDOGREL [Suspect]
     Indication: DRUG USE FOR UNKNOWN INDICATION
     Dosage: (DF)
  4. HYDROCHLOROTHIAZIDE [Concomitant]
  5. VALSARTAN [Concomitant]

REACTIONS (23)
  - ANOREXIA [None]
  - ARTHRALGIA [None]
  - ASTHENIA [None]
  - BLOOD CULTURE POSITIVE [None]
  - CHOLESTASIS [None]
  - COUGH [None]
  - DERMATITIS EXFOLIATIVE [None]
  - DISCOMFORT [None]
  - DRUG PRESCRIBING ERROR [None]
  - DRUG RASH WITH EOSINOPHILIA AND SYSTEMIC SYMPTOMS [None]
  - DYSPNOEA [None]
  - ENTEROCOCCAL INFECTION [None]
  - FATIGUE [None]
  - HEPATIC FUNCTION ABNORMAL [None]
  - HYPERURICAEMIA [None]
  - HYPOTENSION [None]
  - LOSS OF CONSCIOUSNESS [None]
  - MYALGIA [None]
  - PYREXIA [None]
  - RENAL FAILURE [None]
  - RENAL IMPAIRMENT [None]
  - SIMILAR REACTION ON PREVIOUS EXPOSURE TO DRUG [None]
  - VASCULITIS [None]
